FAERS Safety Report 10919250 (Version 1)
Quarter: 2015Q1

REPORT INFORMATION
  Report Type: Spontaneous
  Country: US (occurrence: US)
  Receive Date: 20150316
  Receipt Date: 20150316
  Transmission Date: 20150721
  Serious: Yes (Hospitalization)
  Sender: FDA-Public Use
  Company Number: US-UNITED THERAPEUTICS-UNT-2015-001303

PATIENT
  Age: 68 Year
  Sex: Female
  Weight: 63.39 kg

DRUGS (3)
  1. WARFARIN [Concomitant]
     Active Substance: WARFARIN
     Indication: PRODUCT USED FOR UNKNOWN INDICATION
  2. REMODULIN [Suspect]
     Active Substance: TREPROSTINIL
     Indication: PULMONARY HYPERTENSION
     Dosage: 0.0915 ?G/KG/MIN, CONTINUING
     Route: 041
     Dates: start: 20130815
  3. REMODULIN [Suspect]
     Active Substance: TREPROSTINIL
     Dosage: 0.0925 ?G/KG/MIN, CONTINUING
     Route: 041
     Dates: start: 20130815

REACTIONS (7)
  - Abdominal pain upper [Unknown]
  - Oxygen saturation decreased [Unknown]
  - Diarrhoea [Unknown]
  - Haemoptysis [Unknown]
  - Dyspnoea [Unknown]
  - Flushing [Unknown]
  - Fatigue [Unknown]

NARRATIVE: CASE EVENT DATE: 201502
